FAERS Safety Report 19266628 (Version 1)
Quarter: 2021Q2

REPORT INFORMATION
  Report Type: Spontaneous
  Country: FR (occurrence: FR)
  Receive Date: 20210518
  Receipt Date: 20210518
  Transmission Date: 20210717
  Serious: Yes (Other)
  Sender: FDA-Public Use
  Company Number: FR-TEVA-2021-FR-1911368

PATIENT
  Age: 59 Year
  Sex: Female
  Weight: 55 kg

DRUGS (8)
  1. PEMETREXED. [Suspect]
     Active Substance: PEMETREXED
     Indication: LUNG ADENOCARCINOMA
     Dosage: 812 MILLIGRAM
     Route: 042
     Dates: start: 20210114, end: 20210114
  2. THERALENE [Concomitant]
     Active Substance: TRIMEPRAZINE
     Indication: PRODUCT USED FOR UNKNOWN INDICATION
     Dosage: 4MILLIGRAM
     Route: 048
  3. PARACETAMOL [Suspect]
     Active Substance: ACETAMINOPHEN
     Indication: PAIN
     Dosage: 3GRAM
     Route: 042
     Dates: start: 20210105, end: 20210122
  4. LEVETIRACETAM. [Concomitant]
     Active Substance: LEVETIRACETAM
     Indication: PRODUCT USED FOR UNKNOWN INDICATION
     Dosage: 500 MG X2 / DAY:UNIT DOSE:1000MILLIGRAM
     Route: 048
     Dates: start: 20210105
  5. CARBOPLATINE ACCORD [Concomitant]
     Active Substance: CARBOPLATIN
     Indication: LUNG ADENOCARCINOMA
     Dosage: 580MILLIGRAM
     Route: 042
     Dates: start: 20210114
  6. METHYLPREDNISOLONE. [Concomitant]
     Active Substance: METHYLPREDNISOLONE
     Indication: PAIN
     Dosage: 120MILLIGRAM
     Route: 048
     Dates: start: 20210105
  7. MANNITOL. [Concomitant]
     Active Substance: MANNITOL
     Indication: BRAIN OEDEMA
     Dosage: 200ML
     Route: 048
     Dates: start: 20210105, end: 20210217
  8. PANTOPRAZOLE [Concomitant]
     Active Substance: PANTOPRAZOLE
     Indication: GASTRIC ULCER
     Dosage: 1DOSAGEFORM
     Route: 048
     Dates: start: 20210111

REACTIONS (1)
  - Hepatocellular injury [Recovered/Resolved]

NARRATIVE: CASE EVENT DATE: 20210121
